FAERS Safety Report 5642026-6 (Version None)
Quarter: 2008Q1

REPORT INFORMATION
  Report Type: 
  Country: None (occurrence: None)
  Receive Date: 20080227
  Receipt Date: 20080215
  Transmission Date: 20080703
  Serious: Yes (Life-Threatening)
  Sender: FDA-Public Use
  Company Number: GB-PFIZER INC-2008015992

PATIENT
  Age: 54 Year
  Sex: Male
  Weight: 86.5 kg

DRUGS (1)
  1. CHANTIX [Suspect]
     Indication: SMOKING CESSATION THERAPY
     Route: 048
     Dates: start: 20071224, end: 20080118

REACTIONS (4)
  - ANGER [None]
  - DEPRESSION [None]
  - SLEEP DISORDER [None]
  - SUICIDAL IDEATION [None]
